FAERS Safety Report 12396716 (Version 2)
Quarter: 2016Q3

REPORT INFORMATION
  Report Type: Spontaneous
  Country: JP (occurrence: JP)
  Receive Date: 20160524
  Receipt Date: 20160901
  Transmission Date: 20161109
  Serious: Yes (Death, Life-Threatening, Other)
  Sender: FDA-Public Use
  Company Number: JP-BRISTOL-MYERS SQUIBB COMPANY-BMS-2016-029329

PATIENT
  Age: 77 Year
  Sex: Female

DRUGS (9)
  1. URSO [Concomitant]
     Active Substance: URSODIOL
     Indication: THERAPEUTIC PROCEDURE
     Route: 048
  2. BLOPRESS [Concomitant]
     Active Substance: CANDESARTAN CILEXETIL
     Indication: THERAPEUTIC PROCEDURE
     Dosage: 4 MG, UNK
     Route: 048
  3. BAYASPIRIN [Concomitant]
     Active Substance: ASPIRIN
     Indication: THERAPEUTIC PROCEDURE
     Dosage: 100 MG, UNK
     Route: 048
  4. THYRADIN S [Concomitant]
     Active Substance: LEVOTHYROXINE SODIUM
     Indication: THERAPEUTIC PROCEDURE
     Dosage: 50 MG, UNK
     Route: 048
  5. TENELIA [Suspect]
     Active Substance: TENELIGLIPTIN
     Indication: THERAPEUTIC PROCEDURE
     Dosage: 20 MG, UNK
     Route: 048
  6. GASTER [Concomitant]
     Active Substance: FAMOTIDINE
     Indication: THERAPEUTIC PROCEDURE
     Dosage: 20 MG, UNK
     Route: 048
  7. METGLUCO [Suspect]
     Active Substance: METFORMIN HYDROCHLORIDE
     Indication: THERAPEUTIC PROCEDURE
     Dosage: 20 MG, UNK
     Route: 048
  8. METGLUCO [Suspect]
     Active Substance: METFORMIN HYDROCHLORIDE
     Indication: DIABETES MELLITUS
     Dosage: 500 MG, BID
     Route: 048
  9. LIPITOR [Concomitant]
     Active Substance: ATORVASTATIN CALCIUM
     Indication: THERAPEUTIC PROCEDURE
     Dosage: 5 MG, UNK
     Route: 048

REACTIONS (2)
  - Lactic acidosis [Fatal]
  - Hypoglycaemia [Unknown]

NARRATIVE: CASE EVENT DATE: 20160408
